FAERS Safety Report 5509122-5 (Version None)
Quarter: 2007Q4

REPORT INFORMATION
  Report Type: 
  Country: None (occurrence: None)
  Receive Date: 20071107
  Receipt Date: 20071029
  Transmission Date: 20080405
  Serious: Yes (Hospitalization)
  Sender: FDA-Public Use
  Company Number: US-ELI_LILLY_AND_COMPANY-US200710007260

PATIENT
  Sex: Male
  Weight: 94.5 kg

DRUGS (1)
  1. CYMBALTA [Suspect]
     Indication: FIBROMYALGIA
     Dosage: 100 MG, DAILY (1/D)
     Route: 048
     Dates: start: 20061024, end: 20070918

REACTIONS (3)
  - DIZZINESS [None]
  - HYPOAESTHESIA FACIAL [None]
  - NON-CARDIAC CHEST PAIN [None]
